FAERS Safety Report 4520477-0 (Version None)
Quarter: 2004Q4

REPORT INFORMATION
  Report Type: 
  Country: None (occurrence: None)
  Receive Date: 20041203
  Receipt Date: 20041125
  Transmission Date: 20050328
  Serious: Yes (Hospitalization)
  Sender: FDA-Public Use
  Company Number: 2004097960

PATIENT
  Sex: Male

DRUGS (5)
  1. NEURONTIN [Suspect]
     Indication: CONDITION AGGRAVATED
     Dosage: ORAL
     Route: 048
  2. NEURONTIN [Suspect]
     Indication: DEPRESSION
     Dosage: ORAL
     Route: 048
  3. ANTIDEPRESSANTS (ANTIDEPRESSANTS) [Concomitant]
  4. ANXIOLYTIC (ANXYOLYTICS) [Concomitant]
  5. ANTIHYPERTENSIVES [Concomitant]

REACTIONS (6)
  - ACTIVITIES OF DAILY LIVING IMPAIRED [None]
  - ATAXIA [None]
  - CONFUSIONAL STATE [None]
  - MENTAL DISORDER [None]
  - MOTOR DYSFUNCTION [None]
  - OVERDOSE [None]
